FAERS Safety Report 6024452-9 (Version None)
Quarter: 2008Q4

REPORT INFORMATION
  Report Type: 
  Country: None (occurrence: None)
  Receive Date: 20081231
  Receipt Date: 20081218
  Transmission Date: 20090506
  Serious: Yes (Other)
  Sender: FDA-Public Use
  Company Number: PHHY2008CA32650

PATIENT
  Sex: Male

DRUGS (5)
  1. DIOVAN [Suspect]
     Dosage: 80 MG, QD
     Route: 048
  2. DIOVAN HCT [Suspect]
     Dosage: 1 TABLET (160/12.5 MG) DAILY
     Route: 048
  3. NEXIUM [Concomitant]
  4. EFFEXOR [Concomitant]
  5. LIPITOR [Concomitant]

REACTIONS (8)
  - ACUTE FEBRILE NEUTROPHILIC DERMATOSIS [None]
  - BODY TEMPERATURE INCREASED [None]
  - CHILLS [None]
  - INFLUENZA LIKE ILLNESS [None]
  - MYALGIA [None]
  - NAUSEA [None]
  - PAIN [None]
  - RASH [None]
